FAERS Safety Report 25794336 (Version 1)
Quarter: 2025Q3

REPORT INFORMATION
  Report Type: Spontaneous
  Country: CA (occurrence: CA)
  Receive Date: 20250912
  Receipt Date: 20250912
  Transmission Date: 20251021
  Serious: Yes (Other)
  Sender: UNITED THERAPEUTICS
  Company Number: CA-UNITED THERAPEUTICS-UNT-2025-027600

PATIENT
  Sex: Female

DRUGS (1)
  1. REMODULIN [Suspect]
     Active Substance: TREPROSTINIL
     Indication: Pulmonary hypertension

REACTIONS (13)
  - Thrombosis [Unknown]
  - Infusion site haemorrhage [Unknown]
  - International normalised ratio increased [Unknown]
  - Pulmonary hypertension [Unknown]
  - Infusion site pain [Unknown]
  - Infusion site erythema [Unknown]
  - Dermatitis contact [Unknown]
  - Complication associated with device [Unknown]
  - Paraesthesia [Unknown]
  - Sensory disturbance [Unknown]
  - Fall [Recovered/Resolved with Sequelae]
  - Eye contusion [Unknown]
  - Off label use [Unknown]

NARRATIVE: CASE EVENT DATE: 20250101
